FAERS Safety Report 6983369-3 (Version None)
Quarter: 2010Q3

REPORT INFORMATION
  Report Type: 
  Country: None (occurrence: None)
  Receive Date: 20100914
  Receipt Date: 20100914
  Transmission Date: 20110219
  Serious: Yes (Hospitalization)
  Sender: FDA-Public Use
  Company Number: None

PATIENT
  Age: 16 Year
  Sex: Female
  Weight: 34.0198 kg

DRUGS (2)
  1. ACETYLCYSTEINE [Suspect]
     Indication: OVERDOSE
     Dosage: LOADING DOSE 1 IV BOLUS
     Route: 040
     Dates: start: 20100810, end: 20100811
  2. ACETYLCYSTEINE [Suspect]
     Dosage: 6.25 MG/KG/HR UNK IV DRIP
     Route: 041

REACTIONS (2)
  - ATRIAL FIBRILLATION [None]
  - ATRIAL FLUTTER [None]
